FAERS Safety Report 20079851 (Version 2)
Quarter: 2021Q4

REPORT INFORMATION
  Report Type: Spontaneous
  Country: DE (occurrence: DE)
  Receive Date: 20211117
  Receipt Date: 20211129
  Transmission Date: 20220304
  Serious: Yes (Hospitalization)
  Sender: FDA-Public Use
  Company Number: DE-ADRED-07238-01

PATIENT
  Age: 71 Year
  Sex: Male
  Weight: 125 kg

DRUGS (5)
  1. LISINOPRIL [Suspect]
     Active Substance: LISINOPRIL
     Indication: Product used for unknown indication
     Dosage: 20 MILLIGRAM, QD (1-0-0-0)
     Route: 048
  2. ALLOPURINOL [Suspect]
     Active Substance: ALLOPURINOL
     Indication: Product used for unknown indication
     Dosage: 300 MILLIGRAM, QD (1-0-0-0)
     Route: 048
  3. HYDROCHLOROTHIAZIDE\RAMIPRIL [Suspect]
     Active Substance: HYDROCHLOROTHIAZIDE\RAMIPRIL
     Indication: Product used for unknown indication
     Dosage: 1 DOSAGE FORM, QD 25|5 MG, 1-0-0-0, TABLETTEN
     Route: 048
  4. DICLAC                             /00372302/ [Concomitant]
     Indication: Product used for unknown indication
     Dosage: 150 MG, BEI BEDARF, RETARD-TABLETTEN
     Route: 048
  5. DICLAC                             /00372302/ [Concomitant]
     Dosage: 150 MG, IF NECESSARY, PROLONGED-RELEASE TABLETS
     Route: 048

REACTIONS (3)
  - Chromaturia [Unknown]
  - Diarrhoea [Unknown]
  - Product prescribing error [Unknown]

NARRATIVE: CASE EVENT DATE: 20210131
